FAERS Safety Report 6211476-1 (Version None)
Quarter: 2009Q2

REPORT INFORMATION
  Report Type: 
  Country: None (occurrence: None)
  Receive Date: 20090602
  Receipt Date: 20090522
  Transmission Date: 20091009
  Serious: Yes (Other)
  Sender: FDA-Public Use
  Company Number: NO-JNJFOC-20090505906

PATIENT
  Age: 5 Year
  Sex: Female

DRUGS (3)
  1. REMICADE [Suspect]
     Dosage: DOSE INCREASED IN OCT-2008
     Route: 042
  2. REMICADE [Suspect]
     Indication: JUVENILE ARTHRITIS
     Route: 042
  3. METHOTREXATE [Concomitant]

REACTIONS (1)
  - INTENTIONAL SELF-INJURY [None]
